FAERS Safety Report 9592374 (Version 1)
Quarter: 2013Q4

REPORT INFORMATION
  Report Type: Spontaneous
  Country: US (occurrence: US)
  Receive Date: 20131004
  Receipt Date: 20131004
  Transmission Date: 20140711
  Serious: No
  Sender: FDA-Public Use
  Company Number: US-BAYER-2013-119926

PATIENT
  Sex: Female

DRUGS (6)
  1. BETASERON [Suspect]
     Indication: MULTIPLE SCLEROSIS
     Dosage: 0.3 MG, QOD
     Route: 058
     Dates: start: 2001
  2. BACLOFEN [Concomitant]
     Dosage: 10 MG, UNK
  3. PROZAC [Concomitant]
     Dosage: 10 MG, UNK
  4. ADDERALL [Concomitant]
     Dosage: 10 MG, UNK
  5. ALPRAZOLAM [Concomitant]
     Dosage: 0.25 MG, UNK
  6. DIVALPROEX [Concomitant]
     Dosage: 125 MG, UNK

REACTIONS (4)
  - Influenza like illness [Unknown]
  - Pyrexia [Unknown]
  - Chills [Unknown]
  - Pain [Unknown]
